FAERS Safety Report 6797689-9 (Version None)
Quarter: 2010Q2

REPORT INFORMATION
  Report Type: 
  Country: None (occurrence: None)
  Receive Date: 20100623
  Receipt Date: 20100528
  Transmission Date: 20101027
  Serious: Yes (Other)
  Sender: FDA-Public Use
  Company Number: JP-SOLVAY-00310003505

PATIENT
  Age: 20 Year

DRUGS (2)
  1. LUVOX [Suspect]
     Indication: DRUG USE FOR UNKNOWN INDICATION
     Dosage: 12.5 MILLIGRAM(S) ORAL; 25 MILLIGRAM(S) ORAL
     Route: 048
  2. RIZE (CLOTIAZEPAM) [Concomitant]

REACTIONS (4)
  - ACTIVATION SYNDROME [None]
  - IMPULSIVE BEHAVIOUR [None]
  - IRRITABILITY [None]
  - SUICIDAL IDEATION [None]
